FAERS Safety Report 10573097 (Version 1)
Quarter: 2014Q4

REPORT INFORMATION
  Report Type: Spontaneous
  Country: US (occurrence: None)
  Receive Date: 20141107
  Receipt Date: 20141107
  Transmission Date: 20150529
  Serious: No
  Sender: FDA-Public Use
  Company Number: None

PATIENT
  Sex: Female
  Weight: 61.69 kg

DRUGS (2)
  1. ETHINYL ESTRADIOL\NORETHINDRONE [Suspect]
     Active Substance: ETHINYL ESTRADIOL\NORETHINDRONE
     Indication: MENOPAUSE
     Dosage: 2 TABLETS
     Route: 048
     Dates: start: 201306
  2. ETHINYL ESTRADIOL\NORETHINDRONE [Suspect]
     Active Substance: ETHINYL ESTRADIOL\NORETHINDRONE
     Indication: HORMONE LEVEL ABNORMAL
     Dosage: 2 TABLETS
     Route: 048
     Dates: start: 201306

REACTIONS (1)
  - Headache [None]
